FAERS Safety Report 20108452 (Version 1)
Quarter: 2021Q4

REPORT INFORMATION
  Report Type: Spontaneous
  Country: US (occurrence: US)
  Receive Date: 20211124
  Receipt Date: 20211124
  Transmission Date: 20220303
  Serious: No
  Sender: FDA-Public Use
  Company Number: US-PERRIGO-21US011290

PATIENT
  Age: 85 Year
  Sex: Male
  Weight: 112.93 kg

DRUGS (10)
  1. POLYETHYLENE GLYCOL 3350 [Suspect]
     Active Substance: POLYETHYLENE GLYCOL 3350
     Indication: Bowel preparation
     Dosage: 17 G, QD
     Route: 048
     Dates: start: 20210812
  2. SENNA                              /00142201/ [Concomitant]
     Indication: Bowel preparation
     Dosage: UNK
     Route: 065
     Dates: start: 20210812, end: 20210813
  3. LASIX                              /00032601/ [Concomitant]
     Indication: Peripheral swelling
     Dosage: UNK
     Route: 065
  4. VITAMIN B [Concomitant]
     Active Substance: VITAMIN B
     Indication: Supplementation therapy
     Dosage: UNK
     Route: 065
  5. UNSPECIFIED INGREDIENT [Concomitant]
     Active Substance: UNSPECIFIED INGREDIENT
     Indication: Cardiac discomfort
     Dosage: UNK
     Route: 065
  6. VITAMIN E                          /00110501/ [Concomitant]
     Indication: Supplementation therapy
     Dosage: UNK
     Route: 065
  7. VITAMIN D3 [Concomitant]
     Active Substance: CHOLECALCIFEROL
     Indication: Supplementation therapy
     Dosage: UNK
     Route: 065
  8. INSULIN NOS [Concomitant]
     Active Substance: INSULIN NOS
     Indication: Diabetes mellitus
     Dosage: UNK
     Route: 065
     Dates: start: 202009
  9. UNSPECIFIED INGREDIENT [Concomitant]
     Active Substance: UNSPECIFIED INGREDIENT
     Indication: Hypertension
     Dosage: UNK
     Route: 065
     Dates: start: 202009
  10. IRON [Concomitant]
     Active Substance: IRON
     Indication: Red blood cell count decreased
     Dosage: UNK
     Route: 065
     Dates: start: 202009

REACTIONS (1)
  - Drug ineffective for unapproved indication [Unknown]

NARRATIVE: CASE EVENT DATE: 20210812
